FAERS Safety Report 8335023-3 (Version None)
Quarter: 2012Q2

REPORT INFORMATION
  Report Type: 
  Country: None (occurrence: None)
  Receive Date: 20120503
  Receipt Date: 20120502
  Transmission Date: 20120825
  Serious: Yes (Hospitalization, Other)
  Sender: FDA-Public Use
  Company Number: KR-ABBOTT-12P-090-0929870-00

PATIENT
  Sex: Male
  Weight: 32 kg

DRUGS (3)
  1. PENTASA [Concomitant]
     Indication: CROHN'S DISEASE
     Dosage: 3000MG DAILY
     Route: 048
     Dates: start: 20030715, end: 20120210
  2. HUMIRA [Suspect]
     Route: 058
  3. HUMIRA [Suspect]
     Indication: CROHN'S DISEASE
     Dosage: INDUCTION THERAPY
     Route: 058
     Dates: start: 20101221, end: 20101221

REACTIONS (7)
  - VOMITING [None]
  - HYPOTENSION [None]
  - DIARRHOEA [None]
  - ANAEMIA [None]
  - NAUSEA [None]
  - ANAEMIA OF CHRONIC DISEASE [None]
  - PARAESTHESIA [None]
